FAERS Safety Report 20703280 (Version 1)
Quarter: 2022Q2

REPORT INFORMATION
  Report Type: Other
  Country: GB (occurrence: GB)
  Receive Date: 20220413
  Receipt Date: 20220413
  Transmission Date: 20220721
  Serious: Yes (Hospitalization, Congenital Anomaly, Other)
  Sender: FDA-Public Use
  Company Number: None

PATIENT
  Age: 65 Year
  Sex: Male

DRUGS (1)
  1. PIPERACILLIN AND TAZOBACTAM [Suspect]
     Active Substance: PIPERACILLIN SODIUM\TAZOBACTAM SODIUM
     Indication: Sepsis

REACTIONS (6)
  - Odynophagia [Unknown]
  - Swelling [Unknown]
  - Jugular vein thrombosis [None]
  - Thrombophlebitis [Unknown]
  - Fusobacterium infection [Unknown]
  - Lemierre syndrome [Unknown]
